FAERS Safety Report 8737463 (Version 2)
Quarter: 2013Q4

REPORT INFORMATION
  Report Type: Spontaneous
  Country: US (occurrence: US)
  Receive Date: 20120822
  Receipt Date: 20131101
  Transmission Date: 20140711
  Serious: No
  Sender: FDA-Public Use
  Company Number: US-009507513-1207USA005572

PATIENT
  Sex: Female

DRUGS (3)
  1. JANUMET [Suspect]
     Dosage: 500MG/50MG, BID INT HE MORNING AND AT NIGHT
     Route: 048
  2. LANTUS [Suspect]
     Indication: DIABETES MELLITUS
     Dosage: 30 UNITS, BID
     Route: 058
  3. HUMALOG [Suspect]
     Dosage: 15 UNITS, BEFORE EACH MEAL

REACTIONS (3)
  - Glycosylated haemoglobin increased [Unknown]
  - Sensation of heaviness [Unknown]
  - Depression [Unknown]
